FAERS Safety Report 24220194 (Version 1)
Quarter: 2024Q3

REPORT INFORMATION
  Report Type: Spontaneous
  Country: DE (occurrence: DE)
  Receive Date: 20240817
  Receipt Date: 20240817
  Transmission Date: 20241016
  Serious: Yes (Other)
  Sender: ACCORD
  Company Number: DE-Accord-441293

PATIENT
  Age: 55 Year
  Sex: Female
  Weight: 147 kg

DRUGS (2)
  1. CLOZAPINE [Suspect]
     Active Substance: CLOZAPINE
     Indication: Schizophrenia
     Dates: start: 2003
  2. VALPROATE SODIUM [Suspect]
     Active Substance: VALPROATE SODIUM
     Indication: Schizophrenia
     Dates: start: 2003

REACTIONS (1)
  - Obesity [Recovered/Resolved]
